FAERS Safety Report 10718569 (Version 1)
Quarter: 2015Q1

REPORT INFORMATION
  Report Type: Spontaneous
  Country: US (occurrence: US)
  Receive Date: 20150119
  Receipt Date: 20150119
  Transmission Date: 20150721
  Serious: No
  Sender: FDA-Public Use
  Company Number: US-UNITED THERAPEUTICS-UNT-2014-004895

PATIENT
  Age: 37 Year
  Sex: Female
  Weight: 63.39 kg

DRUGS (3)
  1. ADCIRCA [Concomitant]
     Active Substance: TADALAFIL
     Indication: PRODUCT USED FOR UNKNOWN INDICATION
  2. TYVASO [Suspect]
     Active Substance: TREPROSTINIL
     Indication: COR PULMONALE CHRONIC
     Dosage: 18-54 MICROGRAMS, QID
     Dates: start: 20140722
  3. OPSUMIT [Concomitant]
     Active Substance: MACITENTAN
     Indication: PRODUCT USED FOR UNKNOWN INDICATION

REACTIONS (15)
  - Malaise [Unknown]
  - Oropharyngeal pain [Unknown]
  - Chest pain [Unknown]
  - Dizziness [Recovered/Resolved]
  - Anxiety [Unknown]
  - Ageusia [Unknown]
  - Decreased appetite [Unknown]
  - Adverse drug reaction [Unknown]
  - Throat irritation [Unknown]
  - Cough [Unknown]
  - Dyspnoea [Unknown]
  - Depression [Unknown]
  - Weight decreased [Unknown]
  - Diarrhoea [Unknown]
  - Therapy cessation [Recovered/Resolved]

NARRATIVE: CASE EVENT DATE: 2014
